FAERS Safety Report 5933129-7 (Version None)
Quarter: 2008Q4

REPORT INFORMATION
  Report Type: 
  Country: None (occurrence: None)
  Receive Date: 20081023
  Receipt Date: 20060529
  Transmission Date: 20090506
  Serious: Yes (Death, Other)
  Sender: FDA-Public Use
  Company Number: 2006AL002037

PATIENT
  Age: 80 Year

DRUGS (4)
  1. NAPROXEN [Suspect]
     Indication: ARTHRALGIA
     Dosage: 250 MG;BID;PO
     Route: 048
     Dates: start: 20060407, end: 20060417
  2. LANSOPRAZOLE [Concomitant]
  3. PARACETAMOL/DIHYDROCODEINE [Concomitant]
  4. CIPROFLOXACIN [Concomitant]

REACTIONS (1)
  - DEATH [None]
